FAERS Safety Report 16406191 (Version 1)
Quarter: 2019Q2

REPORT INFORMATION
  Report Type: Spontaneous
  Country: US (occurrence: US)
  Receive Date: 20190607
  Receipt Date: 20190607
  Transmission Date: 20190711
  Serious: No
  Sender: FDA-Public Use
  Company Number: US-ALLERGAN-1840813US

PATIENT
  Sex: Male

DRUGS (4)
  1. VIBERZI [Suspect]
     Active Substance: ELUXADOLINE
     Indication: IRRITABLE BOWEL SYNDROME
     Dosage: 75 MG, BID
     Route: 065
  2. VIBERZI [Suspect]
     Active Substance: ELUXADOLINE
     Dosage: 50 MG, QPM
  3. VIBERZI [Suspect]
     Active Substance: ELUXADOLINE
     Dosage: 100 MG, QAM
  4. CARAFATE [Suspect]
     Active Substance: SUCRALFATE
     Indication: GASTROOESOPHAGEAL REFLUX DISEASE
     Dosage: UNK
     Route: 065

REACTIONS (7)
  - Constipation [Unknown]
  - Drug ineffective [Unknown]
  - Off label use [Unknown]
  - Erosive oesophagitis [Unknown]
  - Wrong technique in product usage process [Unknown]
  - Diarrhoea [Unknown]
  - Gastrooesophageal reflux disease [Unknown]
